FAERS Safety Report 16312217 (Version 1)
Quarter: 2019Q2

REPORT INFORMATION
  Report Type: Spontaneous
  Country: JP (occurrence: JP)
  Receive Date: 20190515
  Receipt Date: 20190515
  Transmission Date: 20190711
  Serious: Yes (Other)
  Sender: FDA-Public Use
  Company Number: JP-TEVA-2019-JP-1049534

PATIENT
  Age: 71 Year
  Sex: Male
  Weight: 40 kg

DRUGS (3)
  1. TRASTUZUMAB. [Concomitant]
     Active Substance: TRASTUZUMAB
     Indication: GASTRIC CANCER STAGE II
     Dosage: 8MG/KG; ON DAY 1 OF THE CYCLE
     Route: 041
  2. CISPLATIN. [Suspect]
     Active Substance: CISPLATIN
     Indication: GASTRIC CANCER STAGE II
     Dosage: 80 MG/M2; DRUG WAS GIVEN ON DAY 1
     Route: 041
  3. CAPECITABINE. [Concomitant]
     Active Substance: CAPECITABINE
     Indication: GASTRIC CANCER STAGE II
     Dosage: 1000MG/M2; FOR 14 DAYS FOLLOWED BY A 1-WEEK REST
     Route: 048

REACTIONS (2)
  - Renal impairment [Unknown]
  - Decreased appetite [Unknown]
